FAERS Safety Report 24005083 (Version 1)
Quarter: 2024Q2

REPORT INFORMATION
  Report Type: Spontaneous
  Country: US (occurrence: None)
  Receive Date: 20240621
  Receipt Date: 20240621
  Transmission Date: 20240716
  Serious: Yes (Hospitalization)
  Sender: FDA-Public Use
  Company Number: None

PATIENT
  Age: 70 Year
  Sex: Male
  Weight: 76 kg

DRUGS (1)
  1. SUMATRIPTAN SUCCINATE [Suspect]
     Active Substance: SUMATRIPTAN SUCCINATE
     Indication: Migraine
     Dosage: 50 MG EVERY DAY PO
     Route: 048
     Dates: start: 20231215, end: 20240212

REACTIONS (5)
  - Feeling abnormal [None]
  - Chest pain [None]
  - Hyperhidrosis [None]
  - Nervousness [None]
  - Hypertension [None]

NARRATIVE: CASE EVENT DATE: 20240203
